FAERS Safety Report 18440641 (Version 1)
Quarter: 2020Q4

REPORT INFORMATION
  Report Type: Spontaneous
  Country: ES (occurrence: ES)
  Receive Date: 20201029
  Receipt Date: 20201029
  Transmission Date: 20210114
  Serious: Yes (Other)
  Sender: FDA-Public Use
  Company Number: ES-TEVA-2020-ES-1841809

PATIENT
  Age: 61 Year
  Sex: Female
  Weight: 68 kg

DRUGS (4)
  1. FLUOXETINA (2331A) [Concomitant]
     Active Substance: FLUOXETINE HYDROCHLORIDE
     Indication: DEPRESSION
     Dosage: 20MG
     Route: 048
     Dates: start: 20190530
  2. LORAZEPAM (1864A) [Concomitant]
     Active Substance: LORAZEPAM
     Indication: DEPRESSION
     Dosage: 1MG
     Route: 048
     Dates: start: 20190530
  3. ENALAPRIL MYLAN 20 MG COMPRIMIDOS EFG , 28 COMPRIMIDOS [Concomitant]
     Indication: HYPERTENSION
     Dosage: 20 MILLIGRAM DAILY; 1 COMPRESSED IN THE MORNING
     Route: 048
     Dates: start: 201710
  4. SIMVASTATINA DAVUR 20 MG COMPRIMIDOS RECUBIERTOS EFG, 28 COMPRIMIDOS [Suspect]
     Active Substance: SIMVASTATIN
     Indication: DYSLIPIDAEMIA
     Dosage: 20 MILLIGRAM DAILY; 1 COMPRESSED AT NIGHTS
     Route: 048
     Dates: start: 20141215

REACTIONS (1)
  - Transient global amnesia [Recovered/Resolved]

NARRATIVE: CASE EVENT DATE: 20201006
